FAERS Safety Report 19923846 (Version 1)
Quarter: 2021Q4

REPORT INFORMATION
  Report Type: Spontaneous
  Country: GB (occurrence: GB)
  Receive Date: 20211005
  Receipt Date: 20211005
  Transmission Date: 20220303
  Serious: Yes (Other)
  Sender: FDA-Public Use
  Company Number: GB-ASCEND THERAPEUTICS US, LLC-2120222

PATIENT
  Sex: Female

DRUGS (3)
  1. ESTROGEL [Suspect]
     Active Substance: ESTRADIOL
     Indication: Product used for unknown indication
     Route: 065
     Dates: start: 2021
  2. ESTROGEL [Suspect]
     Active Substance: ESTRADIOL
  3. ESTRADIOL [Suspect]
     Active Substance: ESTRADIOL
     Route: 065
     Dates: start: 2021

REACTIONS (15)
  - Suicidal ideation [Unknown]
  - Anxiety [Unknown]
  - Insomnia [Unknown]
  - Palpitations [Unknown]
  - Chest pain [Unknown]
  - Fatigue [Unknown]
  - Panic attack [Unknown]
  - Urinary tract infection [Unknown]
  - Dizziness [Unknown]
  - Amnesia [Unknown]
  - Feeling abnormal [Unknown]
  - Pruritus [Unknown]
  - Depressed mood [Unknown]
  - Nausea [Unknown]
  - Drug ineffective [None]

NARRATIVE: CASE EVENT DATE: 20210101
